FAERS Safety Report 8872069 (Version 2)
Quarter: 2012Q4

REPORT INFORMATION
  Report Type: 
  Country: MX (occurrence: MX)
  Receive Date: 20121027
  Receipt Date: 20121113
  Transmission Date: 20130627
  Serious: Yes (Other)
  Sender: FDA-Public Use
  Company Number: MX-009507513-1210MEX011457

PATIENT
  Age: 66 Year
  Sex: Male
  Weight: 97 kg

DRUGS (5)
  1. COSOPT [Suspect]
     Indication: INTRAOCULAR PRESSURE TEST ABNORMAL
     Dosage: 1 Gtt, bid
     Route: 047
     Dates: start: 2010
  2. METICEL (HYPROMELLOSE) [Concomitant]
     Indication: EYE LUBRICATION THERAPY
     Dosage: 2 Gtt, q2h
     Route: 047
     Dates: start: 2012
  3. ENALAPRIL MALEATE [Concomitant]
     Indication: HYPERTENSION
     Dosage: 3 DF, qd
     Route: 048
  4. METFORMIN [Concomitant]
     Indication: DIABETES MELLITUS
     Dosage: 850 mg, bid
     Route: 048
  5. GLIBENCLAMID [Concomitant]
     Indication: DIABETES MELLITUS
     Dosage: 4 DF, qd
     Route: 048

REACTIONS (6)
  - Blindness unilateral [Unknown]
  - Visual acuity reduced [Unknown]
  - Lacrimation increased [Not Recovered/Not Resolved]
  - Eye pain [Not Recovered/Not Resolved]
  - Drug ineffective [Not Recovered/Not Resolved]
  - Eye irritation [Not Recovered/Not Resolved]
